FAERS Safety Report 19140460 (Version 1)
Quarter: 2021Q2

REPORT INFORMATION
  Report Type: Spontaneous
  Country: US (occurrence: US)
  Receive Date: 20210415
  Receipt Date: 20210415
  Transmission Date: 20210717
  Serious: No
  Sender: FDA-Public Use
  Company Number: None

PATIENT
  Age: 43 Year
  Sex: Female
  Weight: 76.5 kg

DRUGS (2)
  1. LEVOTHYROXINE 0.100MG (100MCG) TAB [Suspect]
     Active Substance: LEVOTHYROXINE
     Indication: HYPOTHYROIDISM
     Dosage: ?          QUANTITY:30 TABLET(S);?
  2. SYNTHROID (LEVOTHYROXINE) 100MCG [Concomitant]

REACTIONS (7)
  - Muscle fatigue [None]
  - Disturbance in attention [None]
  - Depressed level of consciousness [None]
  - Mood swings [None]
  - Alopecia [None]
  - Fatigue [None]
  - Weight increased [None]

NARRATIVE: CASE EVENT DATE: 20210320
